FAERS Safety Report 8185501-5 (Version None)
Quarter: 2012Q1

REPORT INFORMATION
  Report Type: 
  Country: None (occurrence: None)
  Receive Date: 20120305
  Receipt Date: 20120223
  Transmission Date: 20120608
  Serious: Yes (Hospitalization)
  Sender: FDA-Public Use
  Company Number: FR-ASTRAZENECA-2012SE13299

PATIENT
  Age: 83 Year
  Sex: Male

DRUGS (9)
  1. NEXIUM [Suspect]
     Route: 048
  2. AMLODIPINE BESYLATE [Suspect]
     Route: 048
  3. PRAVASTATIN [Suspect]
     Route: 048
  4. PREVISCAN [Suspect]
     Route: 048
  5. PERINDOPRIL ERBUMINE [Suspect]
     Route: 048
  6. ALFUZOSIN HCL [Suspect]
     Route: 048
  7. ALLOPURINOL [Suspect]
     Route: 048
  8. ASPIRIN [Suspect]
     Route: 048
  9. LASIX [Suspect]
     Route: 048

REACTIONS (4)
  - PURPURA [None]
  - VASCULITIS [None]
  - ASTHENIA [None]
  - DYSPNOEA EXERTIONAL [None]
